FAERS Safety Report 5205848-1 (Version None)
Quarter: 2007Q1

REPORT INFORMATION
  Report Type: 
  Country: None (occurrence: None)
  Receive Date: 20070105
  Receipt Date: 20070105
  Transmission Date: 20070707
  Serious: Yes (Hospitalization)
  Sender: FDA-Public Use
  Company Number: None

PATIENT
  Sex: Male
  Weight: 77.5651 kg

DRUGS (14)
  1. DOXORUBICIN HCL [Suspect]
     Indication: B-CELL LYMPHOMA
     Dosage: 100 MG Q3 WEEKS IV
     Route: 042
     Dates: start: 20060401, end: 20060901
  2. LEVOTHYROXINE SODIUM [Concomitant]
  3. ETODOLAC [Concomitant]
  4. SERTRALINE [Concomitant]
  5. PROCHLORPERAZINE [Concomitant]
  6. OMEPRAZOLE [Concomitant]
  7. METOPROLOL SUCCINATE [Concomitant]
  8. FILGRASTIM [Concomitant]
  9. NORTRIPTYLINE HCL [Concomitant]
  10. PREDNISONE [Concomitant]
  11. DARBEPOETIN ALPHA [Concomitant]
  12. NYSTATIN [Concomitant]
  13. TRIAMCINOLONE ACETONIDE [Concomitant]
  14. NYSTATIN [Concomitant]

REACTIONS (1)
  - CARDIAC FAILURE [None]
